FAERS Safety Report 7931672-2 (Version None)
Quarter: 2011Q4

REPORT INFORMATION
  Report Type: 
  Country: None (occurrence: None)
  Receive Date: 20111121
  Receipt Date: 20111110
  Transmission Date: 20120403
  Serious: Yes (Other)
  Sender: FDA-Public Use
  Company Number: PHEH2011US04670

PATIENT
  Sex: Female
  Weight: 61.678 kg

DRUGS (13)
  1. VIVELLE-DOT [Suspect]
     Dosage: 0.0275 MG, QW2
     Route: 062
     Dates: start: 20110101, end: 20110101
  2. CLIMARA [Suspect]
     Indication: HOT FLUSH
     Dosage: 0.0375 MG, ONCE WEEKLY
     Route: 062
     Dates: start: 20110101
  3. ZYRTEC [Suspect]
     Indication: ANTIALLERGIC THERAPY
     Dosage: 10 MG, DAILY
     Dates: start: 20110101
  4. LEVOXYL [Concomitant]
     Dosage: UNK UKN, UNK
  5. PREMARIN [Suspect]
     Dosage: UNK UKN, UNK
  6. ZITHROMAX [Suspect]
     Indication: COUGH
     Dosage: 250 MG, BID
     Dates: start: 20110101, end: 20110101
  7. VITAMIN D [Concomitant]
     Dosage: UNK UKN, UNK
  8. AZELASTINE HCL [Suspect]
     Indication: UPPER-AIRWAY COUGH SYNDROME
     Dosage: 0.15 %, ONE OR TWO PUFFS AS NEEDED
     Dates: start: 20110101
  9. CLIMARA [Suspect]
     Dosage: 0.0375 MG, QW2
     Route: 062
     Dates: end: 20111003
  10. CYANOCOBALAMIN [Concomitant]
     Dosage: UNK UKN, UNK
  11. ZYRTEC [Suspect]
     Dosage: SPLITING 10 MG TABLET IN TO HALF
  12. MEDROL [Suspect]
     Indication: COUGH
     Dosage: 4 MG, UNK
     Dates: start: 20110101, end: 20110101
  13. LOSARTAN [Concomitant]
     Indication: HYPERTENSION
     Dosage: 50 MG, DAILY

REACTIONS (15)
  - INFECTION [None]
  - GENERAL PHYSICAL HEALTH DETERIORATION [None]
  - DYSPHAGIA [None]
  - ASTHMA [None]
  - PHARYNGEAL INFLAMMATION [None]
  - UPPER-AIRWAY COUGH SYNDROME [None]
  - COUGH [None]
  - DRUG HYPERSENSITIVITY [None]
  - HOT FLUSH [None]
  - DYSPHONIA [None]
  - SLEEP DISORDER [None]
  - INCREASED UPPER AIRWAY SECRETION [None]
  - DRY THROAT [None]
  - DRY MOUTH [None]
  - NASAL DRYNESS [None]
